FAERS Safety Report 5316455-4 (Version None)
Quarter: 2007Q2

REPORT INFORMATION
  Report Type: 
  Country: None (occurrence: None)
  Receive Date: 20070504
  Receipt Date: 20070423
  Transmission Date: 20071010
  Serious: Yes (Other)
  Sender: FDA-Public Use
  Company Number: PHEH2007US04629

PATIENT
  Sex: Female

DRUGS (13)
  1. ZELNORM [Suspect]
     Indication: IRRITABLE BOWEL SYNDROME
     Dosage: 6 MG, BID
     Route: 048
     Dates: start: 20061201, end: 20070301
  2. SPIRIVA ^PFIZER^ [Concomitant]
  3. NASACORT [Concomitant]
  4. ACCOLATE [Concomitant]
  5. CELEBREX [Concomitant]
  6. FELODIPINE [Concomitant]
  7. DOCUSATE SODIUM [Concomitant]
  8. CALCIUM W/VITAMIN D NOS [Concomitant]
  9. PLAVIX [Concomitant]
  10. COZAAR [Concomitant]
  11. AMBIEN [Concomitant]
  12. VYTORIN [Concomitant]
  13. TYLENOL W/ CODEINE NO. 3 [Concomitant]

REACTIONS (1)
  - CEREBROVASCULAR ACCIDENT [None]
